FAERS Safety Report 9577262 (Version 1)
Quarter: 2013Q4

REPORT INFORMATION
  Report Type: Spontaneous
  Country: US (occurrence: US)
  Receive Date: 20131001
  Receipt Date: 20131001
  Transmission Date: 20140711
  Serious: No
  Sender: FDA-Public Use
  Company Number: US-AMGEN-USASP2013006924

PATIENT
  Sex: Male

DRUGS (7)
  1. ENBREL [Suspect]
     Indication: PSORIATIC ARTHROPATHY
     Dosage: 50 MG, QWK
     Route: 058
  2. ZOLPIDEM [Concomitant]
     Dosage: 5 MG, UNK
  3. VICODIN [Concomitant]
     Dosage: 7.5-300
  4. SIMVASTATIN [Concomitant]
     Dosage: 10 MG, UNK
  5. RANITIDINE [Concomitant]
     Dosage: 150 MG, UNK
  6. DICYCLOMINE                        /00068601/ [Concomitant]
     Dosage: 10 MG, UNK
  7. METAXALONE [Concomitant]
     Dosage: 800 MG, UNK

REACTIONS (3)
  - Sinusitis [Unknown]
  - Lower respiratory tract infection [Unknown]
  - Muscle spasms [Unknown]
